FAERS Safety Report 9675816 (Version 1)
Quarter: 2013Q4

REPORT INFORMATION
  Report Type: Spontaneous
  Country: US (occurrence: None)
  Receive Date: 20131105
  Receipt Date: 20131105
  Transmission Date: 20140711
  Serious: Yes (Hospitalization)
  Sender: FDA-Public Use
  Company Number: 2013US001831

PATIENT
  Age: 59 Year
  Sex: Male
  Weight: 84 kg

DRUGS (16)
  1. ICLUSIG [Suspect]
     Indication: CHRONIC MYELOID LEUKAEMIA
     Route: 048
     Dates: start: 20130502
  2. CELEXA (CITALOPRAM HYDROBROMIDE) [Concomitant]
  3. ZANTAC (RANITIDINE HYDROCHLORIDE) [Concomitant]
  4. ALDACTONE (POTASSIUM CANRENOATE) [Concomitant]
  5. COREG (CARVEDILOL) [Concomitant]
  6. NITROSTAT (GLYCERYL TRINITRATE) [Concomitant]
  7. K-DUR (POTASSIUM CHLORIDE) [Concomitant]
  8. LASIX (FUROSEMIDE) [Concomitant]
  9. PRINIVIL (LISINOPRIL DIHYDRATE) [Concomitant]
  10. ZOCOR (SIMVASTATIN) [Concomitant]
  11. SYMBICORT [Concomitant]
  12. PLAVIX (CLOPIDOGREL BISULFATE) [Concomitant]
  13. ECOTRIN (ACETYLSALICYLIC ACID) [Concomitant]
  14. NAPROXYN (NAPROXEN) [Concomitant]
  15. COMPAZINE (PROCHLORPERAZINE MALEATE) [Concomitant]
  16. PROVENTIL (SALBUTAMOL SULFATE) [Concomitant]

REACTIONS (9)
  - Coronary artery restenosis [None]
  - Pain in extremity [None]
  - Acute myocardial infarction [None]
  - Skin disorder [None]
  - Skin exfoliation [None]
  - Rash erythematous [None]
  - Dry skin [None]
  - Constipation [None]
  - Rash [None]
